FAERS Safety Report 21851695 (Version 3)
Quarter: 2023Q1

REPORT INFORMATION
  Report Type: Spontaneous
  Country: DE (occurrence: DE)
  Receive Date: 20230112
  Receipt Date: 20230203
  Transmission Date: 20230418
  Serious: Yes (Other)
  Sender: FDA-Public Use
  Company Number: DE-ALKABELLO A/S-2023AA000044

PATIENT

DRUGS (1)
  1. ACARIZAX [Suspect]
     Active Substance: DERMATOPHAGOIDES FARINAE\DERMATOPHAGOIDES PTERONYSSINUS
     Indication: Product used for unknown indication
     Dosage: 12 SQ-HDM
     Route: 060
     Dates: end: 20230103

REACTIONS (6)
  - Tongue abscess [Unknown]
  - Glossitis [Unknown]
  - Swollen tongue [Unknown]
  - Lip swelling [Unknown]
  - Mouth swelling [Recovering/Resolving]
  - Swollen tongue [Recovering/Resolving]
